FAERS Safety Report 7631733-1 (Version None)
Quarter: 2011Q3

REPORT INFORMATION
  Report Type: 
  Country: None (occurrence: None)
  Receive Date: 20110725
  Receipt Date: 20110223
  Transmission Date: 20111222
  Serious: No
  Sender: FDA-Public Use
  Company Number: US-BRISTOL-MYERS SQUIBB COMPANY-15565203

PATIENT
  Age: 68 Year
  Sex: Male
  Weight: 67 kg

DRUGS (1)
  1. COUMADIN [Suspect]
     Indication: DEEP VEIN THROMBOSIS
     Dosage: STARTED 5 YRS AGO, TOOK IT FOR 2 YRS AND RESTARTED.

REACTIONS (3)
  - PROTHROMBIN LEVEL DECREASED [None]
  - SYNCOPE [None]
  - BLOOD PRESSURE DECREASED [None]
